FAERS Safety Report 15998717 (Version 1)
Quarter: 2019Q1

REPORT INFORMATION
  Report Type: Spontaneous
  Country: CZ (occurrence: CZ)
  Receive Date: 20190223
  Receipt Date: 20190223
  Transmission Date: 20190418
  Serious: Yes (Death, Life-Threatening, Hospitalization, Other)
  Sender: FDA-Public Use
  Company Number: CZ-TEVA-2019-CZ-1013533

PATIENT
  Age: 45 Year
  Sex: Male
  Weight: 114 kg

DRUGS (4)
  1. BETALOC 100MG [Concomitant]
     Indication: HYPERTENSION
     Dosage: 100 MILLIGRAM DAILY; THE DOSAGE 1-0-0
     Dates: start: 2013
  2. SIOFOR 500MG [Concomitant]
     Indication: DIABETES MELLITUS
     Dosage: LONG-TERM MEDICATION, THE DOSAGE 1-0-1
     Route: 048
     Dates: start: 20130823, end: 20181207
  3. ATORVASTATIN ACTAVIS [Suspect]
     Active Substance: ATORVASTATIN
     Indication: HYPERCHOLESTEROLAEMIA
     Dosage: 10 MILLIGRAM DAILY; 0-0-1
     Route: 048
     Dates: start: 20181016, end: 20181207
  4. PRESTANCE [Concomitant]
     Active Substance: AMLODIPINE BESYLATE\PERINDOPRIL ARGININE
     Indication: HYPERTENSION
     Dosage: THE DOSAGE 1-0-0
     Route: 048
     Dates: start: 2013

REACTIONS (2)
  - Pancreatitis necrotising [Fatal]
  - Abdominal pain [Not Recovered/Not Resolved]

NARRATIVE: CASE EVENT DATE: 20181208
